FAERS Safety Report 24744169 (Version 1)
Quarter: 2024Q4

REPORT INFORMATION
  Report Type: Spontaneous
  Country: RS (occurrence: RS)
  Receive Date: 20241217
  Receipt Date: 20241217
  Transmission Date: 20250115
  Serious: Yes (Hospitalization, Other)
  Sender: ANI
  Company Number: RS-ANIPHARMA-2024-RS-000011

PATIENT
  Age: 23 Year
  Sex: Female

DRUGS (2)
  1. ERYTHROMYCIN ETHYLSUCCINATE [Suspect]
     Active Substance: ERYTHROMYCIN ETHYLSUCCINATE
     Indication: Antibiotic therapy
     Dosage: 500 MG 3 TIMES DAILY
  2. BROMOCRIPTINE [Suspect]
     Active Substance: BROMOCRIPTINE
     Indication: Lactation inhibition therapy

REACTIONS (1)
  - Porphyria acute [Recovered/Resolved]
